FAERS Safety Report 16425751 (Version 1)
Quarter: 2019Q2

REPORT INFORMATION
  Report Type: Spontaneous
  Country: US (occurrence: US)
  Receive Date: 20190613
  Receipt Date: 20190613
  Transmission Date: 20190711
  Serious: No
  Sender: FDA-Public Use
  Company Number: US-PFIZER INC-2019249296

PATIENT
  Sex: Male

DRUGS (1)
  1. ADVIL LIQUI-GELS [Suspect]
     Active Substance: IBUPROFEN
     Dosage: 1 DF, 1X/DAY (TOOK A LIQUIGELS MINI LAST NIGHT)
     Dates: start: 20190609, end: 20190609

REACTIONS (1)
  - Foreign body in respiratory tract [Not Recovered/Not Resolved]

NARRATIVE: CASE EVENT DATE: 20190609
